FAERS Safety Report 4360829-5 (Version None)
Quarter: 2004Q2

REPORT INFORMATION
  Report Type: 
  Country: None (occurrence: None)
  Receive Date: 20040517
  Receipt Date: 20040429
  Transmission Date: 20050107
  Serious: Yes (Life-Threatening, Hospitalization)
  Sender: FDA-Public Use
  Company Number: 19389

PATIENT
  Age: 16 Year
  Sex: Male

DRUGS (3)
  1. TAMBOCOR [Suspect]
     Indication: TACHYCARDIA
     Dosage: 300 MG (3 IN 1 DAY(S)); ORAL
     Route: 048
     Dates: start: 20010402, end: 20010410
  2. SUXINUTIN [Concomitant]
  3. ERGENYL - SLOW RELEASE [Concomitant]

REACTIONS (11)
  - ANOXIC ENCEPHALOPATHY [None]
  - APHASIA [None]
  - BRADYCARDIA [None]
  - CARDIO-RESPIRATORY ARREST [None]
  - COMA [None]
  - CONDITION AGGRAVATED [None]
  - EPILEPSY [None]
  - LOSS OF CONSCIOUSNESS [None]
  - MOVEMENT DISORDER [None]
  - TACHYCARDIA [None]
  - VENTRICULAR FIBRILLATION [None]
